FAERS Safety Report 8140521-1 (Version None)
Quarter: 2012Q1

REPORT INFORMATION
  Report Type: 
  Country: None (occurrence: None)
  Receive Date: 20120216
  Receipt Date: 20120208
  Transmission Date: 20120608
  Serious: Yes (Hospitalization)
  Sender: FDA-Public Use
  Company Number: US-BAYER-2011-075335

PATIENT
  Age: 21 Year
  Sex: Female

DRUGS (4)
  1. PEPCID [Concomitant]
     Dosage: 20 MG, UNK
     Route: 042
     Dates: start: 20080311
  2. ZANTAC [Concomitant]
     Dosage: 75 MG, BID
     Route: 048
     Dates: start: 20080311
  3. YAZ [Suspect]
     Dosage: UNK
     Dates: start: 20080101, end: 20081201
  4. PROMETHAZINE [Concomitant]
     Dosage: 12.5 MG, UNK
     Route: 042
     Dates: start: 20080311

REACTIONS (3)
  - CHOLECYSTITIS ACUTE [None]
  - GALLBLADDER CHOLESTEROLOSIS [None]
  - GALLBLADDER INJURY [None]
